FAERS Safety Report 9228355 (Version 1)
Quarter: 2013Q2

REPORT INFORMATION
  Report Type: Spontaneous
  Country: US (occurrence: US)
  Receive Date: 20130412
  Receipt Date: 20130412
  Transmission Date: 20140414
  Serious: Yes (Death, Hospitalization)
  Sender: FDA-Public Use
  Company Number: US-GLAXOSMITHKLINE-A0777175A

PATIENT
  Age: 62 Year
  Sex: Female

DRUGS (1)
  1. AVANDAMET [Suspect]
     Indication: TYPE 2 DIABETES MELLITUS
     Route: 048
     Dates: start: 20050321, end: 20050323

REACTIONS (3)
  - Cardiopulmonary failure [Fatal]
  - Myocardial infarction [Unknown]
  - Hypoglycaemia [Unknown]
